FAERS Safety Report 13749612 (Version 3)
Quarter: 2017Q3

REPORT INFORMATION
  Report Type: Spontaneous
  Country: JP (occurrence: JP)
  Receive Date: 20170713
  Receipt Date: 20170802
  Transmission Date: 20171127
  Serious: Yes (Other)
  Sender: FDA-Public Use
  Company Number: JP-APOTEX-2017AP015019

PATIENT

DRUGS (1)
  1. PAXIL CR [Suspect]
     Active Substance: PAROXETINE HYDROCHLORIDE
     Indication: DEPRESSION
     Dosage: 12.5 MG, 1D
     Route: 048
     Dates: start: 2015, end: 20170630

REACTIONS (3)
  - Malignant ascites [Unknown]
  - Ileus [Recovered/Resolved]
  - Condition aggravated [Unknown]
